FAERS Safety Report 4683316-3 (Version None)
Quarter: 2005Q2

REPORT INFORMATION
  Report Type: 
  Country: None (occurrence: None)
  Receive Date: 20050602
  Receipt Date: 20050216
  Transmission Date: 20051028
  Serious: No
  Sender: FDA-Public Use
  Company Number: 200510267BWH

PATIENT
  Age: 61 Year
  Sex: Male
  Weight: 102.0593 kg

DRUGS (4)
  1. LEVITRA [Suspect]
     Dosage: SEE IMAGE
     Route: 048
  2. LISINOPRIL [Concomitant]
  3. REQUIP [Concomitant]
  4. SINEMET [Concomitant]

REACTIONS (2)
  - DRUG EFFECT DECREASED [None]
  - ERECTILE DYSFUNCTION [None]
